FAERS Safety Report 18692992 (Version 1)
Quarter: 2021Q1

REPORT INFORMATION
  Report Type: Spontaneous
  Country: US (occurrence: US)
  Receive Date: 20210104
  Receipt Date: 20210104
  Transmission Date: 20210419
  Serious: No
  Sender: FDA-Public Use
  Company Number: US-ASTRAZENECA-2020SF65715

PATIENT
  Sex: Female

DRUGS (1)
  1. SYMBICORT [Suspect]
     Active Substance: BUDESONIDE\FORMOTEROL FUMARATE DIHYDRATE
     Indication: ASTHMA
     Route: 055

REACTIONS (8)
  - Intentional device misuse [Unknown]
  - Expired product administered [Unknown]
  - Product dispensing error [Unknown]
  - Symptom recurrence [Unknown]
  - Drug ineffective [Unknown]
  - Cough [Unknown]
  - Device malfunction [Unknown]
  - Inability to afford medication [Unknown]
